FAERS Safety Report 24362616 (Version 1)
Quarter: 2024Q3

REPORT INFORMATION
  Report Type: Spontaneous
  Country: US (occurrence: None)
  Receive Date: 20240925
  Receipt Date: 20240925
  Transmission Date: 20241017
  Serious: No
  Sender: Public
  Company Number: None

PATIENT
  Age: 44 Year
  Sex: Female
  Weight: 70.65 kg

DRUGS (2)
  1. ZAFIRLUKAST [Suspect]
     Active Substance: ZAFIRLUKAST
     Indication: Asthma
     Dates: start: 20240618, end: 20240919
  2. ZAFIRLUKAST [Suspect]
     Active Substance: ZAFIRLUKAST
     Indication: Rhinitis allergic

REACTIONS (8)
  - Withdrawal syndrome [None]
  - Anxiety [None]
  - Irritability [None]
  - Anger [None]
  - Muscle spasms [None]
  - Arthralgia [None]
  - Chest discomfort [None]
  - Weight increased [None]

NARRATIVE: CASE EVENT DATE: 20240921
